FAERS Safety Report 15159991 (Version 4)
Quarter: 2019Q1

REPORT INFORMATION
  Report Type: Not Available
  Country: US (occurrence: US)
  Receive Date: 20180718
  Receipt Date: 20190131
  Transmission Date: 20190417
  Serious: No
  Sender: FDA-Public Use
  Company Number: US-NEUROCRINE BIOSCIENCES INC.-2018NBI02098

PATIENT
  Sex: Female
  Weight: 74.91 kg

DRUGS (4)
  1. INGREZZA [Suspect]
     Active Substance: VALBENAZINE
     Indication: TARDIVE DYSKINESIA
     Route: 048
     Dates: start: 2018
  2. DYAZIDE [Concomitant]
     Active Substance: HYDROCHLOROTHIAZIDE\TRIAMTERENE
  3. INGREZZA [Suspect]
     Active Substance: VALBENAZINE
     Route: 048
     Dates: start: 20181229, end: 20190119
  4. ZOCOR [Concomitant]
     Active Substance: SIMVASTATIN

REACTIONS (8)
  - Confusional state [Unknown]
  - Balance disorder [Unknown]
  - Musculoskeletal disorder [Unknown]
  - Dizziness [Unknown]
  - Pain in extremity [Unknown]
  - Fall [Unknown]
  - Gait disturbance [Unknown]
  - Drug intolerance [Unknown]

NARRATIVE: CASE EVENT DATE: 2018
